FAERS Safety Report 17056475 (Version 1)
Quarter: 2019Q4

REPORT INFORMATION
  Report Type: Spontaneous
  Country: US (occurrence: US)
  Receive Date: 20191121
  Receipt Date: 20191121
  Transmission Date: 20200122
  Serious: No
  Sender: FDA-Public Use
  Company Number: US-DRREDDYS-USA/USA/19/0116067

PATIENT
  Sex: Male

DRUGS (2)
  1. DOXYCYCLINE. [Concomitant]
     Active Substance: DOXYCYCLINE
     Indication: PRODUCT USED FOR UNKNOWN INDICATION
  2. RANITIDINE CAPSULES 150 MG [Suspect]
     Active Substance: RANITIDINE
     Indication: PRODUCT USED FOR UNKNOWN INDICATION
     Route: 048

REACTIONS (6)
  - Recalled product administered [Unknown]
  - Fatigue [Unknown]
  - Headache [Unknown]
  - Malaise [Unknown]
  - Dizziness [Unknown]
  - Asthenia [Unknown]
